FAERS Safety Report 7816658-0 (Version None)
Quarter: 2011Q4

REPORT INFORMATION
  Report Type: 
  Country: None (occurrence: None)
  Receive Date: 20111017
  Receipt Date: 20110923
  Transmission Date: 20120403
  Serious: Yes (Hospitalization, Disabling)
  Sender: FDA-Public Use
  Company Number: ES-ELI_LILLY_AND_COMPANY-ES201108006386

PATIENT
  Sex: Female
  Weight: 48 kg

DRUGS (4)
  1. LEXATIN [Concomitant]
     Indication: SLEEP DISORDER
     Dosage: 1 DF, TID
     Route: 048
  2. FORTEO [Suspect]
     Indication: OSTEOPOROSIS
     Dosage: 20 UG, QD
     Route: 058
     Dates: start: 20110513
  3. COZAAR [Concomitant]
     Indication: HYPERTENSION
     Dosage: 1 DF, QD
     Route: 048
  4. HALOPERIDOL [Concomitant]
     Indication: SLEEP DISORDER
     Dosage: 10 DF, QD

REACTIONS (3)
  - WEIGHT BEARING DIFFICULTY [None]
  - URINARY TRACT INFECTION [None]
  - IMMOBILE [None]
